FAERS Safety Report 9986357 (Version 1)
Quarter: 2014Q1

REPORT INFORMATION
  Report Type: Report from Study
  Country: US (occurrence: US)
  Receive Date: 20140307
  Receipt Date: 20140307
  Transmission Date: 20141002
  Serious: No
  Sender: FDA-Public Use
  Company Number: US-ABBVIE-13P-163-1090396-00

PATIENT
  Age: 57 Year
  Sex: Male
  Weight: 113.5 kg

DRUGS (8)
  1. HUMIRA [Suspect]
     Indication: CROHN^S DISEASE
     Dates: start: 2007, end: 201212
  2. CIMZIA [Suspect]
     Indication: CROHN^S DISEASE
     Dates: start: 201302
  3. PENTASA [Concomitant]
     Indication: CROHN^S DISEASE
  4. 6-MP [Concomitant]
     Indication: CROHN^S DISEASE
  5. HYDROCHLOORTHIAZIDE [Concomitant]
     Indication: HYPERTENSION
  6. ATENOLOL [Concomitant]
     Indication: HYPERTENSION
  7. LISINOPRIL [Concomitant]
     Indication: HYPERTENSION
  8. AMLODIPINE [Concomitant]
     Indication: HYPERTENSION

REACTIONS (2)
  - Muscle spasms [Not Recovered/Not Resolved]
  - Diarrhoea [Not Recovered/Not Resolved]
